FAERS Safety Report 14032698 (Version 2)
Quarter: 2017Q4

REPORT INFORMATION
  Report Type: Spontaneous
  Country: PT (occurrence: PT)
  Receive Date: 20171002
  Receipt Date: 20171004
  Transmission Date: 20180321
  Serious: Yes (Other)
  Sender: FDA-Public Use
  Company Number: PT-PFIZER INC-2017414804

PATIENT
  Age: 11 Year
  Sex: Female

DRUGS (4)
  1. CEFTRIAXONE SODIUM. [Suspect]
     Active Substance: CEFTRIAXONE SODIUM
     Indication: SUBDURAL EMPYEMA
     Dosage: UNK
  2. CEFTRIAXONE SODIUM. [Suspect]
     Active Substance: CEFTRIAXONE SODIUM
     Indication: SINUSITIS
  3. AMPICILLIN [Suspect]
     Active Substance: AMPICILLIN
     Indication: SUBDURAL EMPYEMA
  4. AMPICILLIN [Suspect]
     Active Substance: AMPICILLIN
     Indication: SINUSITIS
     Dosage: UNK

REACTIONS (4)
  - Type IV hypersensitivity reaction [Unknown]
  - Lip oedema [Unknown]
  - Rash pruritic [Unknown]
  - Rash maculo-papular [Unknown]
